FAERS Safety Report 17289503 (Version 1)
Quarter: 2020Q1

REPORT INFORMATION
  Report Type: Spontaneous
  Country: US (occurrence: US)
  Receive Date: 20200120
  Receipt Date: 20200120
  Transmission Date: 20200409
  Serious: No
  Sender: FDA-Public Use
  Company Number: US-ANIPHARMA-2019-US-017785

PATIENT
  Age: 32 Year
  Sex: Female
  Weight: 99.79 kg

DRUGS (1)
  1. FLUVOXAMINE MALEATE 100 MG [Suspect]
     Active Substance: FLUVOXAMINE MALEATE
     Indication: OBSESSIVE-COMPULSIVE DISORDER
     Dosage: 350 MG DAILY
     Route: 048
     Dates: start: 201907, end: 201907

REACTIONS (1)
  - Drug ineffective [Recovered/Resolved]

NARRATIVE: CASE EVENT DATE: 201907
